FAERS Safety Report 4864854-7 (Version None)
Quarter: 2005Q4

REPORT INFORMATION
  Report Type: 
  Country: None (occurrence: None)
  Receive Date: 20051201
  Receipt Date: 20050718
  Transmission Date: 20060501
  Serious: No
  Sender: FDA-Public Use
  Company Number: 2005PV000471

PATIENT
  Age: 68 Year
  Sex: Male

DRUGS (20)
  1. BYETTA [Suspect]
     Indication: DIABETES MELLITUS NON-INSULIN-DEPENDENT
     Dosage: 5 MCG;BID;SC
     Route: 058
     Dates: start: 20050624
  2. METFORMIN HCL [Concomitant]
  3. AVANDIA [Concomitant]
  4. AMARYL [Concomitant]
  5. LANTUS [Concomitant]
  6. ASPIRIN [Concomitant]
  7. SPIRONOLACTONE [Concomitant]
  8. FUROSEMIDE [Concomitant]
  9. LISINOPRIL [Concomitant]
  10. NORVASC [Concomitant]
  11. TRICOR [Concomitant]
  12. ZOCOR [Concomitant]
  13. FLOMAX [Concomitant]
  14. PREVACID [Concomitant]
  15. WELLBUTRIN [Concomitant]
  16. RANITIDINE [Concomitant]
  17. HYDROCODONE BITARTRATE [Concomitant]
  18. APAP TAB [Concomitant]
  19. TYLENOL (CAPLET) [Concomitant]
  20. ALBUTEROL SULFATE AUTOHALER [Concomitant]

REACTIONS (6)
  - CONSTIPATION [None]
  - DECREASED APPETITE [None]
  - HEADACHE [None]
  - MALAISE [None]
  - NAUSEA [None]
  - WEIGHT DECREASED [None]
